FAERS Safety Report 8812507 (Version 1)
Quarter: 2012Q4

REPORT INFORMATION
  Report Type: 
  Country: US (occurrence: US)
  Receive Date: 20120927
  Receipt Date: 20120927
  Transmission Date: 20130627
  Serious: No
  Sender: FDA-Public Use
  Company Number: US-ASTRAZENECA-2012SE72798

PATIENT
  Age: 58 Year
  Sex: Female
  Weight: 123.4 kg

DRUGS (6)
  1. NEXIUM [Suspect]
     Indication: GASTROOESOPHAGEAL REFLUX DISEASE
     Route: 048
  2. COZAAR [Concomitant]
     Indication: HYPERTENSION
  3. NORVASC [Concomitant]
     Indication: HYPERTENSION
  4. PAXIL [Concomitant]
  5. ALLEGRA OTC [Concomitant]
  6. TOVIAZ [Concomitant]
     Indication: BLADDER DISORDER

REACTIONS (2)
  - Abdominal pain upper [Not Recovered/Not Resolved]
  - Intentional drug misuse [Unknown]
